FAERS Safety Report 14965327 (Version 2)
Quarter: 2018Q2

REPORT INFORMATION
  Report Type: Spontaneous
  Country: US (occurrence: US)
  Receive Date: 20180601
  Receipt Date: 20180622
  Transmission Date: 20180711
  Serious: Yes (Hospitalization)
  Sender: FDA-Public Use
  Company Number: US-ACTELION-A-NJ2018-172992

PATIENT
  Age: 73 Year
  Sex: Male

DRUGS (4)
  1. CORGARD [Concomitant]
     Active Substance: NADOLOL
  2. NADOLOL. [Concomitant]
     Active Substance: NADOLOL
  3. OPSUMIT [Suspect]
     Active Substance: MACITENTAN
     Indication: PULMONARY ARTERIAL HYPERTENSION
     Dosage: 10 MG, QD
     Route: 048
  4. AMARYL [Concomitant]
     Active Substance: GLIMEPIRIDE

REACTIONS (3)
  - Pulmonary hypertension [Unknown]
  - Dyspnoea [Recovering/Resolving]
  - Fluid overload [Recovering/Resolving]
